FAERS Safety Report 15347229 (Version 1)
Quarter: 2018Q3

REPORT INFORMATION
  Report Type: Spontaneous
  Country: US (occurrence: US)
  Receive Date: 20180904
  Receipt Date: 20180904
  Transmission Date: 20181010
  Serious: No
  Sender: FDA-Public Use
  Company Number: US-BAYER-2018-164990

PATIENT
  Age: 78 Year
  Sex: Female
  Weight: 57 kg

DRUGS (4)
  1. ENALAPRIL 1A PHARMA GMBH [Concomitant]
     Active Substance: ENALAPRIL MALEATE
     Dosage: UNK MG, UNK
  2. MAGNESIUM + E?VITAMIN [Concomitant]
     Dosage: UNK
  3. MIRALAX [Suspect]
     Active Substance: POLYETHYLENE GLYCOL 3350
     Indication: GASTROINTESTINAL DISORDER
     Dosage: 1 DF, QD
     Route: 048
     Dates: start: 201808
  4. BIOTIN [Concomitant]
     Active Substance: BIOTIN
     Dosage: UNK

REACTIONS (2)
  - Product packaging quantity issue [None]
  - Product use issue [Unknown]

NARRATIVE: CASE EVENT DATE: 201808
